FAERS Safety Report 19144643 (Version 1)
Quarter: 2021Q2

REPORT INFORMATION
  Report Type: Spontaneous
  Country: US (occurrence: US)
  Receive Date: 20210415
  Receipt Date: 20210415
  Transmission Date: 20210717
  Serious: Yes (Hospitalization)
  Sender: FDA-Public Use
  Company Number: None

PATIENT
  Sex: Male

DRUGS (14)
  1. LEVETIRACETA [Concomitant]
     Active Substance: LEVETIRACETAM
  2. LEVOTHROXIN [Concomitant]
  3. OMEPRAZOLE. [Concomitant]
     Active Substance: OMEPRAZOLE
  4. VALACYCLOVIR [Concomitant]
     Active Substance: VALACYCLOVIR HYDROCHLORIDE
  5. FINASTERIDE. [Concomitant]
     Active Substance: FINASTERIDE
  6. GABAPENTIN. [Concomitant]
     Active Substance: GABAPENTIN
  7. FUROSEMIDE. [Concomitant]
     Active Substance: FUROSEMIDE
  8. LIDOCAINE. [Concomitant]
     Active Substance: LIDOCAINE
  9. EVEROLIMUS 5 MG (7 TAB/CARD) [Suspect]
     Active Substance: EVEROLIMUS
     Indication: RENAL CANCER
     Route: 048
     Dates: start: 20210226
  10. CITALOPRAM [Concomitant]
     Active Substance: CITALOPRAM HYDROBROMIDE
  11. MORPHINE SUL [Concomitant]
     Active Substance: MORPHINE SULFATE
  12. ELIQUIS [Concomitant]
     Active Substance: APIXABAN
  13. HYDROCHLOROT [Concomitant]
     Active Substance: HYDROCHLOROTHIAZIDE
  14. OXYCODONE [Concomitant]
     Active Substance: OXYCODONE

REACTIONS (2)
  - Hip fracture [None]
  - Fall [None]
